FAERS Safety Report 24163034 (Version 1)
Quarter: 2024Q3

REPORT INFORMATION
  Report Type: Spontaneous
  Country: CA (occurrence: CA)
  Receive Date: 20240801
  Receipt Date: 20240801
  Transmission Date: 20241017
  Serious: Yes (Other)
  Sender: BAYER
  Company Number: CA-BAYER-2024A110781

PATIENT
  Age: 72 Year
  Sex: Female

DRUGS (12)
  1. POLYETHYLENE GLYCOL 3350 [Suspect]
     Active Substance: POLYETHYLENE GLYCOL 3350
  2. ACETAMINOPHEN [Suspect]
     Active Substance: ACETAMINOPHEN
  3. ONDANSETRON HYDROCHLORIDE [Suspect]
     Active Substance: ONDANSETRON HYDROCHLORIDE
  4. POLYETHYLENE GLYCOL [Suspect]
     Active Substance: POLYETHYLENE GLYCOL
  5. SENNOSIDES [Suspect]
     Active Substance: SENNOSIDES
  6. DEXAMETHASONE [Suspect]
     Active Substance: DEXAMETHASONE
  7. RISEDRONATE SODIUM [Suspect]
     Active Substance: RISEDRONATE SODIUM
  8. ATORVASTATIN CALCIUM [Suspect]
     Active Substance: ATORVASTATIN CALCIUM
  9. PROPYLENE GLYCOL [Suspect]
     Active Substance: PROPYLENE GLYCOL
  10. PROCHLORPERAZINE [Suspect]
     Active Substance: PROCHLORPERAZINE
  11. HYDROMORPHONE [Suspect]
     Active Substance: HYDROMORPHONE
  12. PEGFILGRASTIM [Suspect]
     Active Substance: PEGFILGRASTIM

REACTIONS (1)
  - Febrile neutropenia [None]
